FAERS Safety Report 15204179 (Version 1)
Quarter: 2018Q3

REPORT INFORMATION
  Report Type: Spontaneous
  Country: US (occurrence: US)
  Receive Date: 20180726
  Receipt Date: 20180726
  Transmission Date: 20181010
  Serious: No
  Sender: FDA-Public Use
  Company Number: US-ASTRAZENECA-2018SE84838

PATIENT
  Sex: Female
  Weight: 81.6 kg

DRUGS (6)
  1. BYDUREON [Suspect]
     Active Substance: EXENATIDE
     Indication: GLYCOSYLATED HAEMOGLOBIN INCREASED
     Route: 065
  2. BYETTA [Suspect]
     Active Substance: EXENATIDE
     Indication: WEIGHT DECREASED
     Route: 065
  3. BYETTA [Suspect]
     Active Substance: EXENATIDE
     Indication: WEIGHT DECREASED
     Route: 065
  4. BYETTA [Suspect]
     Active Substance: EXENATIDE
     Indication: GLYCOSYLATED HAEMOGLOBIN INCREASED
     Route: 065
  5. BYDUREON [Suspect]
     Active Substance: EXENATIDE
     Indication: WEIGHT DECREASED
     Route: 065
  6. BYETTA [Suspect]
     Active Substance: EXENATIDE
     Indication: GLYCOSYLATED HAEMOGLOBIN INCREASED
     Route: 065

REACTIONS (3)
  - Injection site mass [Not Recovered/Not Resolved]
  - Wrong technique in device usage process [Unknown]
  - Injection site haemorrhage [Unknown]
